FAERS Safety Report 22059870 (Version 1)
Quarter: 2023Q1

REPORT INFORMATION
  Report Type: Spontaneous
  Country: GB (occurrence: GB)
  Receive Date: 20230303
  Receipt Date: 20230303
  Transmission Date: 20230418
  Serious: Yes (Other)
  Sender: FDA-Public Use
  Company Number: None

PATIENT
  Age: 69 Year
  Sex: Female
  Weight: 49 kg

DRUGS (13)
  1. DOXYCYCLINE [Suspect]
     Active Substance: DOXYCYCLINE
     Indication: Product used for unknown indication
     Dosage: 100MG. 2 NOW THEN 1 DAILY,
     Route: 065
     Dates: start: 20230203, end: 20230210
  2. ADCAL [Concomitant]
     Indication: Product used for unknown indication
     Dosage: 2 DOSAGE FORMS DAILY;
     Dates: start: 20220427
  3. AMOXICILLIN [Concomitant]
     Active Substance: AMOXICILLIN
     Indication: Product used for unknown indication
     Dosage: 3 DOSAGE FORMS DAILY;
     Dates: start: 20230203, end: 20230210
  4. BENSERAZIDE HYDROCHLORIDE\LEVODOPA [Concomitant]
     Active Substance: BENSERAZIDE HYDROCHLORIDE\LEVODOPA
     Indication: Product used for unknown indication
     Dates: start: 20220513
  5. FLUDROCORTISONE [Concomitant]
     Active Substance: FLUDROCORTISONE
     Indication: Product used for unknown indication
     Dosage: 1 DOSAGE FORMS DAILY; ON A MORNING TO HELP I,
     Dates: start: 20221130
  6. LORATADINE [Concomitant]
     Active Substance: LORATADINE
     Indication: Product used for unknown indication
     Dosage: 1 DOSAGE FORMS DAILY; TO CALM DOWN THE ALLE,
     Dates: start: 20230215
  7. MACROBID [Concomitant]
     Active Substance: NITROFURANTOIN\NITROFURANTOIN MONOHYDRATE
     Indication: Product used for unknown indication
     Dosage: 2 DOSAGE FORMS DAILY;
     Dates: start: 20230119, end: 20230126
  8. NITROFURANTOIN [Concomitant]
     Active Substance: NITROFURANTOIN
     Indication: Product used for unknown indication
     Dosage: 4 DOSAGE FORMS DAILY;
     Dates: start: 20230113, end: 20230116
  9. OMEPRAZOLE [Concomitant]
     Active Substance: OMEPRAZOLE
     Indication: Product used for unknown indication
     Dosage: 1 DOSAGE FORMS DAILY; ON A MORNING FOR 5 DA,
     Dates: start: 20230215
  10. PREDNISOLONE [Concomitant]
     Active Substance: PREDNISOLONE
     Indication: Product used for unknown indication
     Dosage: 6 DOSAGE FORMS DAILY; TAKE ON A MORN,
     Dates: start: 20230215
  11. PREGABALIN [Concomitant]
     Active Substance: PREGABALIN
     Indication: Anxiety
     Dosage: 1 DOSAGE FORMS DAILY;
     Dates: start: 20221004
  12. ALBUTEROL [Concomitant]
     Active Substance: ALBUTEROL
     Indication: Product used for unknown indication
     Dosage: INHALE 2 DOSES AS NEEDED;
     Route: 055
     Dates: start: 20230203, end: 20230204
  13. SERTRALINE [Concomitant]
     Active Substance: SERTRALINE HYDROCHLORIDE
     Indication: Product used for unknown indication
     Dosage: 1 DOSAGE FORMS DAILY;
     Dates: start: 20221004

REACTIONS (3)
  - Myalgia [Unknown]
  - Pyrexia [Unknown]
  - Rash macular [Recovered/Resolved]
